FAERS Safety Report 5633768-7 (Version None)
Quarter: 2008Q1

REPORT INFORMATION
  Report Type: 
  Country: None (occurrence: None)
  Receive Date: 20080131
  Receipt Date: 20071116
  Transmission Date: 20080703
  Serious: No
  Sender: FDA-Public Use
  Company Number: 163-21880-07111030

PATIENT
  Age: 43 Year
  Sex: Female

DRUGS (8)
  1. REVLIMID [Suspect]
     Indication: MYELODYSPLASTIC SYNDROME
     Dosage: 10 MG, EVERYDAY FOR 28 DAYS, ORAL
     Route: 048
     Dates: start: 20071023
  2. LANTUS [Concomitant]
  3. GLUCOPHAGE [Concomitant]
  4. COZAAR [Concomitant]
  5. SYNTHROID [Concomitant]
  6. B-12 (CYANOCOBALAMIN) [Concomitant]
  7. FOLIC ACID [Concomitant]
  8. COUMADIN [Concomitant]

REACTIONS (3)
  - DIARRHOEA [None]
  - OEDEMA PERIPHERAL [None]
  - WHITE BLOOD CELL COUNT DECREASED [None]
